FAERS Safety Report 9030598 (Version 3)
Quarter: 2013Q1

REPORT INFORMATION
  Report Type: Spontaneous
  Country: BR (occurrence: BR)
  Receive Date: 20130123
  Receipt Date: 20130201
  Transmission Date: 20140127
  Serious: Yes (Death)
  Sender: FDA-Public Use
  Company Number: BR-AMGEN-BRASP2012002250

PATIENT
  Age: 63 Year
  Sex: Male
  Weight: 100 kg

DRUGS (3)
  1. ENBREL [Suspect]
     Indication: PSORIASIS
     Dosage: 50 MG, WEEKLY
     Route: 058
     Dates: start: 20100730, end: 201110
  2. HYDROCHLOROTHIAZIDE [Concomitant]
     Dosage: UNK
  3. MOMETASONE [Concomitant]
     Dosage: UNK

REACTIONS (2)
  - Infarction [Fatal]
  - Liver disorder [Unknown]
